FAERS Safety Report 5170633-6 (Version None)
Quarter: 2006Q4

REPORT INFORMATION
  Report Type: 
  Country: None (occurrence: None)
  Receive Date: 20061205
  Receipt Date: 20061122
  Transmission Date: 20070319
  Serious: Yes (Other)
  Sender: FDA-Public Use
  Company Number: 2006144729

PATIENT
  Age: 72 Year
  Sex: Male

DRUGS (6)
  1. INSPRA [Suspect]
     Indication: CARDIAC FAILURE
     Dosage: ORAL
     Route: 048
     Dates: start: 20061022
  2. INSULIN HUMAN [Concomitant]
  3. LANTUS [Concomitant]
  4. ALDACTONE [Concomitant]
  5. UNAT        (TORASEMIDE) [Concomitant]
  6. TORSEMIDE [Concomitant]

REACTIONS (2)
  - BLOOD GLUCOSE INCREASED [None]
  - INCREASED INSULIN REQUIREMENT [None]
